FAERS Safety Report 9464764 (Version 1)
Quarter: 2013Q3

REPORT INFORMATION
  Report Type: Spontaneous
  Country: US (occurrence: US)
  Receive Date: 20130819
  Receipt Date: 20130819
  Transmission Date: 20140515
  Serious: Yes (Death)
  Sender: FDA-Public Use
  Company Number: US-PFIZER INC-2013236113

PATIENT
  Age: 75 Year
  Sex: Male

DRUGS (1)
  1. XALKORI [Suspect]
     Indication: HAEMATOPOIETIC NEOPLASM
     Dosage: 250 MG, UNK
     Dates: start: 20130617, end: 20130618

REACTIONS (3)
  - Off label use [Fatal]
  - Disease progression [Fatal]
  - Haematopoietic neoplasm [Fatal]
